FAERS Safety Report 8480337-X (Version None)
Quarter: 2012Q2

REPORT INFORMATION
  Report Type: 
  Country: None (occurrence: None)
  Receive Date: 20120630
  Receipt Date: 20120625
  Transmission Date: 20120825
  Serious: Yes (Life-Threatening)
  Sender: FDA-Public Use
  Company Number: GB-TEVA-344899ISR

PATIENT
  Age: 60 Year
  Sex: Male

DRUGS (2)
  1. PHENYTOIN [Suspect]
     Indication: CONVULSION
     Dates: start: 20120401
  2. DALTEPARIN SODIUM [Suspect]
     Indication: DEEP VEIN THROMBOSIS
     Route: 058
     Dates: start: 20120525, end: 20120606

REACTIONS (10)
  - BLISTER [None]
  - SKIN EXFOLIATION [None]
  - RASH MACULO-PAPULAR [None]
  - PAIN [None]
  - DEHYDRATION [None]
  - ORAL DISORDER [None]
  - RESPIRATORY FAILURE [None]
  - APHAGIA [None]
  - EYE DISORDER [None]
  - TOXIC EPIDERMAL NECROLYSIS [None]
